FAERS Safety Report 4480514-9 (Version None)
Quarter: 2004Q4

REPORT INFORMATION
  Report Type: 
  Country: None (occurrence: None)
  Receive Date: 20041019
  Receipt Date: 20041005
  Transmission Date: 20050328
  Serious: Yes (Disabling)
  Sender: FDA-Public Use
  Company Number: 2004AP04916

PATIENT
  Age: 76 Year
  Sex: Male

DRUGS (10)
  1. NAROPIN [Suspect]
     Indication: EPIDURAL ANAESTHESIA
     Dosage: 135 MG DAILY ED
     Dates: start: 20040514, end: 20040514
  2. EPHEDRINE SUL CAP [Suspect]
     Dosage: 8 MG
     Dates: start: 20040514, end: 20040514
  3. THIAMYLAL SODIUM [Concomitant]
  4. FENTANYL CITRATE [Concomitant]
  5. OXYGEN [Concomitant]
  6. ISOFLURANE [Concomitant]
  7. XYLOCAINE [Concomitant]
  8. MIDAZOLAM HCL [Concomitant]
  9. ISOZOL [Concomitant]
  10. MUSCULAX [Concomitant]

REACTIONS (5)
  - ANAESTHETIC COMPLICATION CARDIAC [None]
  - BLOOD PRESSURE FLUCTUATION [None]
  - HYPOTENSION [None]
  - PROCEDURAL COMPLICATION [None]
  - SUPRAVENTRICULAR TACHYCARDIA [None]
